FAERS Safety Report 6688504-2 (Version None)
Quarter: 2010Q2

REPORT INFORMATION
  Report Type: 
  Country: None (occurrence: None)
  Receive Date: 20100415
  Receipt Date: 20100409
  Transmission Date: 20101027
  Serious: Yes (Disabling)
  Sender: FDA-Public Use
  Company Number: 2010SP015637

PATIENT
  Age: 10 Year
  Sex: Female
  Weight: 40 kg

DRUGS (5)
  1. DESLORATADINE [Suspect]
     Indication: ARTHROPOD BITE
     Dosage: 5 ML;QD;PO ; 5 ML;QD;PO
     Route: 048
     Dates: start: 20090901, end: 20090909
  2. DESLORATADINE [Suspect]
     Indication: ARTHROPOD BITE
     Dosage: 5 ML;QD;PO ; 5 ML;QD;PO
     Route: 048
     Dates: start: 20090909, end: 20090919
  3. BISEPTINE [Concomitant]
  4. DEXERYL [Concomitant]
  5. MUPIDERM [Concomitant]

REACTIONS (3)
  - DYSTONIA [None]
  - LIP SWELLING [None]
  - TARDIVE DYSKINESIA [None]
